FAERS Safety Report 21967600 (Version 1)
Quarter: 2023Q1

REPORT INFORMATION
  Report Type: Report from Study
  Country: BE (occurrence: BE)
  Receive Date: 20230208
  Receipt Date: 20230208
  Transmission Date: 20230418
  Serious: Yes (Other)
  Sender: FDA-Public Use
  Company Number: BE-ABBVIE-4195766

PATIENT
  Age: 36 Year
  Sex: Female

DRUGS (3)
  1. HUMIRA [Suspect]
     Active Substance: ADALIMUMAB
     Indication: Crohn^s disease
     Dosage: WEEK 0, LOADED DOSE
     Route: 058
     Dates: start: 20221024, end: 20221024
  2. HUMIRA [Suspect]
     Active Substance: ADALIMUMAB
     Dosage: WEEK 2
     Route: 058
     Dates: start: 202211, end: 202211
  3. HUMIRA [Suspect]
     Active Substance: ADALIMUMAB
     Dosage: WEEK 4
     Route: 058
     Dates: start: 20230102

REACTIONS (21)
  - Gastrointestinal stenosis [Recovering/Resolving]
  - Unevaluable event [Unknown]
  - Injection site hyperaesthesia [Recovered/Resolved]
  - Fatigue [Recovering/Resolving]
  - Malaise [Recovered/Resolved]
  - Nausea [Not Recovered/Not Resolved]
  - Infection [Not Recovered/Not Resolved]
  - Injection site bruising [Not Recovered/Not Resolved]
  - Injection site hyperaesthesia [Not Recovered/Not Resolved]
  - Feeling abnormal [Recovered/Resolved]
  - Fatigue [Recovered/Resolved]
  - Cystitis noninfective [Not Recovered/Not Resolved]
  - Pharyngeal inflammation [Not Recovered/Not Resolved]
  - Gastritis [Not Recovered/Not Resolved]
  - Asthenia [Recovering/Resolving]
  - Gastrointestinal disorder [Recovering/Resolving]
  - Malaise [Not Recovered/Not Resolved]
  - Feeling abnormal [Unknown]
  - Illness [Recovered/Resolved]
  - Drug intolerance [Recovering/Resolving]
  - Fatigue [Unknown]

NARRATIVE: CASE EVENT DATE: 20221024
